FAERS Safety Report 19776245 (Version 2)
Quarter: 2024Q1

REPORT INFORMATION
  Report Type: Report from Study
  Country: CL (occurrence: CL)
  Receive Date: 20210902
  Receipt Date: 20240227
  Transmission Date: 20240410
  Serious: Yes (Hospitalization, Other)
  Sender: FDA-Public Use
  Company Number: CL-ABBVIE-20K-034-3562816-00

PATIENT
  Age: 50 Year
  Sex: Male

DRUGS (6)
  1. HUMIRA [Suspect]
     Active Substance: ADALIMUMAB
     Indication: Rheumatoid arthritis
     Dosage: FORM STRENGTH: 40 MILLIGRAM
     Route: 058
     Dates: start: 20170502
  2. HUMIRA [Suspect]
     Active Substance: ADALIMUMAB
     Dosage: FORM STRENGTH: 40 MILLIGRAM
     Route: 058
     Dates: start: 202402
  3. PREDNISONE [Concomitant]
     Active Substance: PREDNISONE
     Indication: Product used for unknown indication
  4. LEFLUNOMIDE [Concomitant]
     Active Substance: LEFLUNOMIDE
     Indication: Product used for unknown indication
  5. DICLOFENAC [Concomitant]
     Active Substance: DICLOFENAC
     Indication: Product used for unknown indication
     Dosage: AS NEEDED
  6. ACETAMINOPHEN [Concomitant]
     Active Substance: ACETAMINOPHEN
     Indication: Product used for unknown indication

REACTIONS (8)
  - Radiculopathy [Recovered/Resolved]
  - Spinal cord injury [Recovered/Resolved]
  - Hypoaesthesia [Unknown]
  - Muscle atrophy [Unknown]
  - Intervertebral disc disorder [Unknown]
  - Osteoarthritis [Unknown]
  - Spinal osteoarthritis [Recovered/Resolved]
  - Mobility decreased [Unknown]

NARRATIVE: CASE EVENT DATE: 20200821
